FAERS Safety Report 6164531-9 (Version None)
Quarter: 2009Q2

REPORT INFORMATION
  Report Type: 
  Country: None (occurrence: None)
  Receive Date: 20090421
  Receipt Date: 20090408
  Transmission Date: 20091009
  Serious: Yes (Disabling)
  Sender: FDA-Public Use
  Company Number: 2009AL002215

PATIENT
  Age: 38 Year
  Sex: Female

DRUGS (3)
  1. RAMIPRIL [Suspect]
     Indication: HYPERTENSION
     Dosage: 10 MG, PO
     Route: 048
     Dates: start: 20060801, end: 20090319
  2. DOXAZOSIN MESYLATE [Concomitant]
  3. BENDROFLUMETHIAZIDE [Concomitant]

REACTIONS (3)
  - CONJUNCTIVITIS INFECTIVE [None]
  - IMPAIRED WORK ABILITY [None]
  - PERIORBITAL OEDEMA [None]
